FAERS Safety Report 5863924-4 (Version None)
Quarter: 2008Q3

REPORT INFORMATION
  Report Type: 
  Country: None (occurrence: None)
  Receive Date: 20080829
  Receipt Date: 20080827
  Transmission Date: 20090109
  Serious: Yes (Other)
  Sender: FDA-Public Use
  Company Number: DE-WYE-G02066208

PATIENT
  Age: 71 Year
  Sex: Female
  Weight: 98 kg

DRUGS (11)
  1. TYGACIL [Suspect]
     Indication: BRONCHOPNEUMONIA
     Route: 042
     Dates: start: 20070418, end: 20070418
  2. TYGACIL [Suspect]
     Route: 042
     Dates: start: 20070418, end: 20070426
  3. DELIX [Concomitant]
     Dosage: 5 MG (FREQUENCY UNKNOWN)
     Route: 048
  4. TOREM COR [Concomitant]
     Dosage: 10 MG (FREQUENCY UNKNOWN)
     Route: 048
  5. NITROGLYCERIN [Concomitant]
     Indication: BRONCHOPNEUMONIA
     Route: 042
     Dates: start: 20070424, end: 20070428
  6. METFORMIN HCL [Concomitant]
     Dosage: 1000 MG (FREQUENCY UNKNOWN)
     Route: 048
  7. SYMBICORT [Concomitant]
  8. SPIRIVA [Concomitant]
  9. BERODUAL [Concomitant]
  10. ENOXAPARIN SODIUM [Concomitant]
     Route: 058
  11. PANTOZOL [Concomitant]

REACTIONS (1)
  - DRUG INEFFECTIVE [None]
